FAERS Safety Report 13961287 (Version 1)
Quarter: 2017Q3

REPORT INFORMATION
  Report Type: Report from Study
  Country: US (occurrence: US)
  Receive Date: 20170912
  Receipt Date: 20170912
  Transmission Date: 20171128
  Serious: Yes (Hospitalization)
  Sender: FDA-Public Use
  Company Number: US-BAYER-2017-168996

PATIENT
  Sex: Female

DRUGS (1)
  1. GADOVIST [Suspect]
     Active Substance: GADOBUTROL
     Dosage: UNK, ONCE

REACTIONS (14)
  - Gadolinium deposition disease [None]
  - Feeling abnormal [None]
  - Rash generalised [None]
  - Emotional distress [None]
  - Cough [None]
  - Speech disorder [None]
  - Throat tightness [None]
  - Pain [None]
  - Arthralgia [None]
  - Mobility decreased [None]
  - Muscular weakness [None]
  - Alopecia [None]
  - Adverse reaction [None]
  - Headache [None]
